FAERS Safety Report 4357020-5 (Version None)
Quarter: 2004Q2

REPORT INFORMATION
  Report Type: 
  Country: None (occurrence: None)
  Receive Date: 20040512
  Receipt Date: 20040405
  Transmission Date: 20050107
  Serious: Yes (Hospitalization)
  Sender: FDA-Public Use
  Company Number: MX-BRISTOL-MYERS SQUIBB COMPANY-12550471

PATIENT
  Age: 43 Year
  Sex: Female
  Weight: 51 kg

DRUGS (6)
  1. CISPLATIN [Suspect]
     Indication: CERVIX CARCINOMA
     Dosage: 1ST DOSE- 27OCT03
     Route: 042
     Dates: start: 20040223, end: 20040223
  2. GEMCITABINE HCL [Suspect]
     Indication: CERVIX CARCINOMA
     Dosage: 1ST DOSE - 27OCT03
     Route: 042
     Dates: start: 20040301, end: 20040301
  3. RADIATION THERAPY [Suspect]
     Indication: CERVIX CARCINOMA
     Dates: start: 20030927, end: 20040108
  4. MULTIVITAMINS + MINERALS [Concomitant]
     Indication: PROPHYLAXIS
     Dates: start: 20031027
  5. THIETHYLPERAZINE [Concomitant]
     Indication: PROPHYLAXIS
     Dates: start: 20031027
  6. RANITIDINE [Concomitant]
     Indication: PROPHYLAXIS
     Dates: start: 20031027

REACTIONS (2)
  - ANAEMIA [None]
  - PROCTITIS ULCERATIVE [None]
